FAERS Safety Report 4372732-5 (Version None)
Quarter: 2004Q2

REPORT INFORMATION
  Report Type: 
  Country: None (occurrence: None)
  Receive Date: 20040603
  Receipt Date: 20010920
  Transmission Date: 20050107
  Serious: Yes (Hospitalization)
  Sender: FDA-Public Use
  Company Number: E128309

PATIENT
  Age: 72 Year
  Sex: Male

DRUGS (3)
  1. (OXALIPLATIN) SOLUTION 85MG/M2 [Suspect]
     Indication: COLON CANCER
     Dosage: 85 MG/M2 Q2W, INTRAVENOUS NOS
     Route: 042
     Dates: start: 20010912, end: 20010912
  2. FLUOROURACIL [Suspect]
     Dosage: 2000 MG/M2 (400 MG/M2 BOLUS THEN 600 MG/M2 AS 22-HOUR CONTINUOUS INFUSION, ON D1 AND D2
     Route: 042
     Dates: start: 20010212, end: 20010913
  3. LEUCOVORIN CALCIUM [Suspect]
     Dosage: INTRAVENOUS NOS
     Route: 042
     Dates: start: 20010912, end: 20010913

REACTIONS (4)
  - BACK PAIN [None]
  - CHILLS [None]
  - HYDRONEPHROSIS [None]
  - NEUTROPENIC SEPSIS [None]
